FAERS Safety Report 9200695 (Version 2)
Quarter: 2013Q2

REPORT INFORMATION
  Report Type: Other
  Country: IT (occurrence: IT)
  Receive Date: 20130331
  Receipt Date: 20130415
  Transmission Date: 20140414
  Serious: Yes (Other)
  Sender: FDA-Public Use
  Company Number: IT-BRISTOL-MYERS SQUIBB COMPANY-18708248

PATIENT
  Sex: 0

DRUGS (2)
  1. ARIPIPRAZOLE [Suspect]
     Indication: MENTAL DISORDER
  2. RISPERIDONE [Concomitant]

REACTIONS (2)
  - Off label use [Unknown]
  - Arrhythmia [Unknown]
